FAERS Safety Report 12583960 (Version 2)
Quarter: 2018Q3

REPORT INFORMATION
  Report Type: Spontaneous
  Country: DK (occurrence: DK)
  Receive Date: 20160722
  Receipt Date: 20180820
  Transmission Date: 20181010
  Serious: Yes (Life-Threatening, Hospitalization)
  Sender: FDA-Public Use
  Company Number: PHHY2016DK098745

PATIENT
  Age: 82 Year
  Sex: Female
  Weight: 64 kg

DRUGS (3)
  1. THYCAPZOL [Concomitant]
     Active Substance: METHIMAZOLE
     Indication: HYPOTHYROIDISM
     Dosage: UNK
     Route: 065
  2. ACLASTA [Suspect]
     Active Substance: ZOLEDRONIC ACID
     Indication: OSTEOPOROSIS
     Dosage: UNK
     Route: 042
     Dates: start: 20140812, end: 20140812
  3. THYCAPZOL [Concomitant]
     Active Substance: METHIMAZOLE
     Dosage: UNK

REACTIONS (22)
  - Renal tubular necrosis [Unknown]
  - Antinuclear antibody positive [Unknown]
  - Pruritus [Unknown]
  - Dehydration [Recovered/Resolved]
  - Palpitations [Unknown]
  - Urine output decreased [Unknown]
  - Glomerulonephritis membranoproliferative [Not Recovered/Not Resolved]
  - Serositis [Unknown]
  - Dizziness [Unknown]
  - Cerebral disorder [Unknown]
  - Hyperhidrosis [Unknown]
  - Dyspnoea [Unknown]
  - Peripheral ischaemia [Recovered/Resolved]
  - Flank pain [Unknown]
  - Confusional state [Unknown]
  - Pallor [Unknown]
  - Renal failure [Recovering/Resolving]
  - Chest pain [Unknown]
  - Tachycardia [Unknown]
  - Fatigue [Unknown]
  - Atrial fibrillation [Unknown]
  - Oedema [Unknown]

NARRATIVE: CASE EVENT DATE: 2014
